FAERS Safety Report 26124118 (Version 1)
Quarter: 2025Q4

REPORT INFORMATION
  Report Type: Spontaneous
  Country: EU (occurrence: EU)
  Receive Date: 20251205
  Receipt Date: 20251205
  Transmission Date: 20260118
  Serious: Yes (Other)
  Sender: ASTELLAS
  Company Number: EU-ASTELLAS-2025-AER-065398

PATIENT
  Age: 40 Year
  Sex: Male

DRUGS (6)
  1. XOSPATA [Suspect]
     Active Substance: GILTERITINIB
     Indication: Acute myeloid leukaemia recurrent
     Route: 065
     Dates: start: 20250424, end: 20250512
  2. XOSPATA [Suspect]
     Active Substance: GILTERITINIB
     Indication: Acute myeloid leukaemia refractory
     Dosage: INCREASED
     Route: 065
     Dates: start: 20250513, end: 20250624
  3. XOSPATA [Suspect]
     Active Substance: GILTERITINIB
     Indication: FLT3 gene mutation
     Dosage: RESTARTED
     Route: 065
     Dates: start: 2025
  4. CYTARABINE [Concomitant]
     Active Substance: CYTARABINE
     Indication: Acute myeloid leukaemia recurrent
     Route: 065
     Dates: start: 20250424
  5. CYTARABINE [Concomitant]
     Active Substance: CYTARABINE
     Indication: Acute myeloid leukaemia refractory
  6. CYTARABINE [Concomitant]
     Active Substance: CYTARABINE
     Indication: FLT3 gene mutation

REACTIONS (5)
  - Pancytopenia [Not Recovered/Not Resolved]
  - Klebsiella sepsis [Unknown]
  - Klebsiella infection [Unknown]
  - Rash maculo-papular [Unknown]
  - Transaminases increased [Unknown]

NARRATIVE: CASE EVENT DATE: 20250101
